FAERS Safety Report 4947549-0 (Version None)
Quarter: 2006Q1

REPORT INFORMATION
  Report Type: 
  Country: None (occurrence: None)
  Receive Date: 20060314
  Receipt Date: 20060303
  Transmission Date: 20060701
  Serious: Yes (Life-Threatening, Hospitalization, Other)
  Sender: FDA-Public Use
  Company Number: 2006032786

PATIENT
  Age: 78 Year
  Sex: Male
  Weight: 71 kg

DRUGS (6)
  1. TIKOSYN [Suspect]
     Indication: ATRIAL FIBRILLATION
     Dosage: 1000 MCG (500 MCG, 2 IN 1 D)
  2. LEVAQUIN [Suspect]
     Indication: PNEUMONIA
     Dosage: 750 MG (750 MG, ONCE INTERVAL: ONE DOSE ONLY)
     Dates: start: 20060228, end: 20060228
  3. ACETAMINOPHEN [Concomitant]
  4. LISINOPRIL [Concomitant]
  5. ZOCOR [Concomitant]
  6. COUMADIN [Concomitant]

REACTIONS (5)
  - DEHYDRATION [None]
  - DRUG INTERACTION [None]
  - ESCHERICHIA URINARY TRACT INFECTION [None]
  - PNEUMONIA [None]
  - VENTRICULAR TACHYCARDIA [None]
